FAERS Safety Report 4761886-4 (Version None)
Quarter: 2005Q3

REPORT INFORMATION
  Report Type: 
  Country: None (occurrence: None)
  Receive Date: 20050906
  Receipt Date: 20050902
  Transmission Date: 20060218
  Serious: Yes (Death, Other)
  Sender: FDA-Public Use
  Company Number: FR-BRISTOL-MYERS SQUIBB COMPANY-13098264

PATIENT
  Age: 52 Year
  Sex: Male

DRUGS (13)
  1. VINFLUNINE IV [Suspect]
     Indication: NON-SMALL CELL LUNG CANCER
     Dosage: DOSE 600 MG-GIVEN ON DAY 1 EVERY 3 WEEKS.
     Route: 042
     Dates: start: 20030306, end: 20030306
  2. CISPLATIN [Suspect]
     Indication: NON-SMALL CELL LUNG CANCER
     Dosage: DOSE 150 MG-GIVEN DAY 1 EVERY 3 WEEKS.
     Route: 042
     Dates: start: 20030306, end: 20030306
  3. GLYBURIDE [Concomitant]
  4. DETENSIEL [Concomitant]
  5. SINTROM [Concomitant]
     Dates: start: 20030201
  6. ELISOR [Concomitant]
  7. METFORMIN HCL [Concomitant]
  8. DAFALGAN CODEINE [Concomitant]
  9. OMEPRAZOLE [Concomitant]
  10. FORLAX [Concomitant]
  11. TETRAZEPAM [Concomitant]
  12. LANSOYL [Concomitant]
  13. LEXOMIL [Concomitant]

REACTIONS (4)
  - ARRHYTHMIA [None]
  - CEREBROVASCULAR ACCIDENT [None]
  - DEATH [None]
  - MALAISE [None]
